FAERS Safety Report 12652296 (Version 1)
Quarter: 2016Q3

REPORT INFORMATION
  Report Type: Report from Study
  Country: KR (occurrence: KR)
  Receive Date: 20160815
  Receipt Date: 20160815
  Transmission Date: 20161109
  Serious: Yes (Hospitalization)
  Sender: FDA-Public Use
  Company Number: KR-ROCHE-1444357

PATIENT
  Age: 68 Year
  Sex: Male
  Weight: 55.4 kg

DRUGS (11)
  1. APETROL (SOUTH KOREA) [Concomitant]
     Indication: DECREASED APPETITE
     Route: 048
     Dates: start: 20140522
  2. OCODONE [Concomitant]
     Indication: CHEST PAIN
     Route: 048
     Dates: start: 20140612
  3. GASTER (SOUTH KOREA) [Concomitant]
     Indication: PROPHYLAXIS
     Route: 048
     Dates: start: 20140806
  4. DUPHALAC (SOUTH KOREA) [Concomitant]
     Indication: CONSTIPATION
     Route: 048
     Dates: start: 20140808
  5. GASTER (SOUTH KOREA) [Concomitant]
     Indication: PROPHYLAXIS
     Route: 048
     Dates: start: 20140806
  6. ULCERMIN (SOUTH KOREA) [Concomitant]
     Indication: PROPHYLAXIS
     Route: 048
     Dates: start: 20140703
  7. ATEZOLIZUMAB [Suspect]
     Active Substance: ATEZOLIZUMAB
     Indication: NON-SMALL CELL LUNG CANCER
     Dosage: MOST RECENT DOSE PRIOR TO THE ONSET OF THE SAES ON 28/JUL/2014.
     Route: 042
     Dates: start: 20140728
  8. OXYCONTIN [Concomitant]
     Active Substance: OXYCODONE HYDROCHLORIDE
     Route: 048
     Dates: start: 20140710, end: 20140724
  9. OXYCONTIN [Concomitant]
     Active Substance: OXYCODONE HYDROCHLORIDE
     Route: 048
     Dates: start: 20140725
  10. MAGNESIUM OXIDE. [Concomitant]
     Active Substance: MAGNESIUM OXIDE
     Indication: PROPHYLAXIS
     Route: 048
     Dates: start: 20140704
  11. OXYCONTIN [Concomitant]
     Active Substance: OXYCODONE HYDROCHLORIDE
     Indication: CHEST PAIN
     Route: 048
     Dates: start: 20140612, end: 20140709

REACTIONS (3)
  - Pleural effusion [Not Recovered/Not Resolved]
  - Chest pain [Recovered/Resolved with Sequelae]
  - Hepatitis [Recovered/Resolved]

NARRATIVE: CASE EVENT DATE: 20140729
